FAERS Safety Report 15551340 (Version 1)
Quarter: 2018Q4

REPORT INFORMATION
  Report Type: Spontaneous
  Country: BR (occurrence: BR)
  Receive Date: 20181025
  Receipt Date: 20181025
  Transmission Date: 20190205
  Serious: Yes (Death, Other)
  Sender: FDA-Public Use
  Company Number: BR-ROCHE-2205458

PATIENT
  Sex: Female

DRUGS (5)
  1. AVASTIN [Suspect]
     Active Substance: BEVACIZUMAB
     Indication: SEROUS CYSTADENOCARCINOMA OVARY
     Route: 042
     Dates: start: 201405, end: 201409
  2. AVASTIN [Suspect]
     Active Substance: BEVACIZUMAB
     Route: 042
  3. GEMZAR [Suspect]
     Active Substance: GEMCITABINE HYDROCHLORIDE
     Indication: SEROUS CYSTADENOCARCINOMA OVARY
     Route: 065
     Dates: start: 201405, end: 201409
  4. ATENOLOL. [Concomitant]
     Active Substance: ATENOLOL
     Indication: HYPERTENSION
  5. CARBOPLATIN. [Suspect]
     Active Substance: CARBOPLATIN
     Indication: SEROUS CYSTADENOCARCINOMA OVARY
     Route: 065
     Dates: start: 201405, end: 201409

REACTIONS (3)
  - Death [Fatal]
  - Thrombocytopenia [Unknown]
  - Polyneuropathy [Unknown]
